FAERS Safety Report 20064545 (Version 1)
Quarter: 2021Q4

REPORT INFORMATION
  Report Type: Spontaneous
  Country: US (occurrence: None)
  Receive Date: 20211112
  Receipt Date: 20211112
  Transmission Date: 20220304
  Serious: No
  Sender: FDA-Public Use
  Company Number: None

PATIENT
  Age: 37 Year
  Sex: Female
  Weight: 49.5 kg

DRUGS (1)
  1. GABAPENTIN [Suspect]
     Active Substance: GABAPENTIN
     Indication: Alcoholism
     Dosage: OTHER QUANTITY : 2 CAPSULE(S);?FREQUENCY : AT BEDTIME;?
     Route: 048
     Dates: start: 20211025, end: 20211112

REACTIONS (6)
  - Somnolence [None]
  - Abnormal dreams [None]
  - Hallucination, visual [None]
  - Hallucination, auditory [None]
  - Thinking abnormal [None]
  - Drug interaction [None]

NARRATIVE: CASE EVENT DATE: 20211112
